FAERS Safety Report 5131696-7 (Version None)
Quarter: 2006Q4

REPORT INFORMATION
  Report Type: 
  Country: None (occurrence: None)
  Receive Date: 20061020
  Receipt Date: 20061006
  Transmission Date: 20070319
  Serious: Yes (Death)
  Sender: FDA-Public Use
  Company Number: US-BOEHRINGER INGELHEIM GMBH, GERMANY-2006-DE-05298GD

PATIENT
  Age: 47 Year
  Sex: Male

DRUGS (3)
  1. NEVIRAPINE [Suspect]
     Indication: HIV INFECTION
  2. STAVUDINE [Suspect]
     Indication: HIV INFECTION
  3. LAMIVUDINE [Suspect]
     Indication: HIV INFECTION

REACTIONS (4)
  - IMMUNE RECONSTITUTION SYNDROME [None]
  - KAPOSI'S SARCOMA AIDS RELATED [None]
  - PRIMARY EFFUSION LYMPHOMA [None]
  - THERAPEUTIC RESPONSE DECREASED [None]
